FAERS Safety Report 16413996 (Version 1)
Quarter: 2019Q2

REPORT INFORMATION
  Report Type: Spontaneous
  Country: US (occurrence: US)
  Receive Date: 20190611
  Receipt Date: 20190611
  Transmission Date: 20190711
  Serious: No
  Sender: FDA-Public Use
  Company Number: US-MYLANLABS-2019M1050160

PATIENT
  Sex: Female

DRUGS (1)
  1. DENAVIR [Suspect]
     Active Substance: PENCICLOVIR
     Indication: HERPES ZOSTER
     Dosage: 1 PERCENT
     Route: 061

REACTIONS (1)
  - Off label use [Not Recovered/Not Resolved]
